FAERS Safety Report 17253130 (Version 1)
Quarter: 2020Q1

REPORT INFORMATION
  Report Type: Spontaneous
  Country: AT (occurrence: DE)
  Receive Date: 20200109
  Receipt Date: 20200109
  Transmission Date: 20200409
  Serious: Yes (Death)
  Sender: FDA-Public Use
  Company Number: DE-TEVA-2019-DE-1162931

PATIENT

DRUGS (5)
  1. CYCLOPHOSPHAMIDE. [Suspect]
     Active Substance: CYCLOPHOSPHAMIDE
     Indication: ATYPICAL TERATOID/RHABDOID TUMOUR OF CNS
     Route: 065
  2. CISPLATIN. [Suspect]
     Active Substance: CISPLATIN
     Indication: ATYPICAL TERATOID/RHABDOID TUMOUR OF CNS
     Route: 065
  3. DOXORUBICIN [Suspect]
     Active Substance: DOXORUBICIN
     Indication: ATYPICAL TERATOID/RHABDOID TUMOUR OF CNS
     Route: 065
  4. VINCRISTINE [Suspect]
     Active Substance: VINCRISTINE
     Indication: ATYPICAL TERATOID/RHABDOID TUMOUR OF CNS
     Route: 065
  5. ETOPOSIDE. [Suspect]
     Active Substance: ETOPOSIDE
     Indication: ATYPICAL TERATOID/RHABDOID TUMOUR OF CNS
     Route: 065

REACTIONS (1)
  - Cerebral haemorrhage [Fatal]
